FAERS Safety Report 24945859 (Version 1)
Quarter: 2025Q1

REPORT INFORMATION
  Report Type: Spontaneous
  Country: US (occurrence: US)
  Receive Date: 20250209
  Receipt Date: 20250209
  Transmission Date: 20250409
  Serious: No
  Sender: ALKEM
  Company Number: US-ALKEM LABORATORIES LIMITED-US-ALKEM-2024-15495

PATIENT
  Sex: Male
  Weight: 73.923 kg

DRUGS (3)
  1. FINASTERIDE [Suspect]
     Active Substance: FINASTERIDE
     Indication: Hair growth abnormal
     Route: 048
     Dates: start: 20240102, end: 20240708
  2. Minidoxil Topical Solution [Concomitant]
     Indication: Hair growth abnormal
     Route: 061
  3. Minidoxil Topical Solution [Concomitant]
     Route: 061

REACTIONS (4)
  - Blood testosterone abnormal [Not Recovered/Not Resolved]
  - Disturbance in sexual arousal [Not Recovered/Not Resolved]
  - Orgasm abnormal [Not Recovered/Not Resolved]
  - Fatigue [Not Recovered/Not Resolved]

NARRATIVE: CASE EVENT DATE: 20240101
